FAERS Safety Report 20221338 (Version 1)
Quarter: 2021Q4

REPORT INFORMATION
  Report Type: Report from Study
  Country: CA (occurrence: CA)
  Receive Date: 20211223
  Receipt Date: 20211223
  Transmission Date: 20220304
  Serious: Yes (Hospitalization, Other)
  Sender: FDA-Public Use
  Company Number: CA-JNJFOC-20210116415

PATIENT
  Age: 73 Year
  Sex: Male
  Weight: 106.5 kg

DRUGS (1)
  1. REMICADE [Suspect]
     Active Substance: INFLIXIMAB
     Indication: Crohn^s disease
     Dosage: ON 09-JAN-2021, THE PATIENT RECEIVED THE INFUSION.
     Route: 042
     Dates: start: 20080605

REACTIONS (5)
  - Nephrolithiasis [Not Recovered/Not Resolved]
  - Cholelithiasis [Unknown]
  - Obstruction [Unknown]
  - Chest discomfort [Unknown]
  - Constipation [Unknown]

NARRATIVE: CASE EVENT DATE: 20210703
